APPROVED DRUG PRODUCT: CARVEDILOL PHOSPHATE
Active Ingredient: CARVEDILOL PHOSPHATE
Strength: 80MG
Dosage Form/Route: CAPSULE, EXTENDED RELEASE;ORAL
Application: A204717 | Product #004 | TE Code: AB
Applicant: IMPAX LABORATORIES INC
Approved: May 7, 2018 | RLD: No | RS: No | Type: RX